FAERS Safety Report 5232557-5 (Version None)
Quarter: 2007Q1

REPORT INFORMATION
  Report Type: 
  Country: None (occurrence: None)
  Receive Date: 20070207
  Receipt Date: 20070202
  Transmission Date: 20070707
  Serious: Yes (Other)
  Sender: FDA-Public Use
  Company Number: DK-GLAXOSMITHKLINE-B0457238A

PATIENT
  Age: 54 Year
  Sex: Female

DRUGS (1)
  1. MALARONE [Suspect]
     Indication: MALARIA PROPHYLAXIS
     Dates: start: 20061204, end: 20061215

REACTIONS (3)
  - PSORIASIS [None]
  - RASH [None]
  - SKIN EXFOLIATION [None]
